FAERS Safety Report 8007520-1 (Version None)
Quarter: 2011Q4

REPORT INFORMATION
  Report Type: 
  Country: None (occurrence: None)
  Receive Date: 20111227
  Receipt Date: 20111213
  Transmission Date: 20120403
  Serious: Yes (Other)
  Sender: FDA-Public Use
  Company Number: JP-ELI_LILLY_AND_COMPANY-JP201110001789

PATIENT
  Age: 68 Year
  Sex: Female

DRUGS (9)
  1. OMEPRAZOLE [Concomitant]
     Dosage: 1 DF, EACH MORNING
     Route: 048
  2. FORTEO [Suspect]
     Indication: OSTEOPOROSIS
     Dosage: UNK
     Route: 058
     Dates: start: 20110427, end: 20110101
  3. ALSIODOL [Concomitant]
     Dosage: 1 DF, EACH MORNING
     Route: 048
  4. RESLART [Concomitant]
     Dosage: UNK DF, UNK
     Route: 048
  5. FORTEO [Suspect]
     Dosage: UNK
     Route: 058
     Dates: start: 20110101, end: 20110817
  6. MAGMITT [Concomitant]
     Dosage: UNK MG, UNK
     Route: 048
  7. RINLAXER [Concomitant]
     Dosage: UNK DF, UNK
     Route: 048
  8. CELECOXIB [Concomitant]
     Dosage: 1 DF, BID
     Route: 048
  9. RHYTHMY [Concomitant]
     Dosage: 1 DF, EACH EVENING
     Route: 048

REACTIONS (1)
  - PLATELET COUNT DECREASED [None]
